FAERS Safety Report 4387216-8 (Version None)
Quarter: 2004Q2

REPORT INFORMATION
  Report Type: 
  Country: None (occurrence: None)
  Receive Date: 20040630
  Receipt Date: 20040324
  Transmission Date: 20050107
  Serious: No
  Sender: FDA-Public Use
  Company Number: US-GLAXOSMITHKLINE-A0504342A

PATIENT
  Age: 65 Year
  Sex: Female

DRUGS (7)
  1. ADVAIR HFA [Suspect]
     Dosage: 1PUFF TWICE PER DAY
     Route: 055
     Dates: start: 20020801
  2. TAMOXIFEN [Concomitant]
  3. DIAZEPAM [Concomitant]
  4. LORAZEPAM [Concomitant]
  5. PREDNISONE [Concomitant]
  6. NYSTATIN [Concomitant]
  7. DIFLUCAN [Concomitant]

REACTIONS (4)
  - DYSGEUSIA [None]
  - PHARMACEUTICAL PRODUCT COMPLAINT [None]
  - RETCHING [None]
  - SKIN INFECTION [None]
